FAERS Safety Report 17569459 (Version 1)
Quarter: 2020Q1

REPORT INFORMATION
  Report Type: Spontaneous
  Country: US (occurrence: US)
  Receive Date: 20200323
  Receipt Date: 20200323
  Transmission Date: 20200409
  Serious: Yes (Death, Other)
  Sender: FDA-Public Use
  Company Number: US-BRISTOL-MYERS SQUIBB COMPANY-BMS-2020-024236

PATIENT
  Age: 52 Year
  Sex: Male
  Weight: 44.44 kg

DRUGS (2)
  1. YERVOY [Suspect]
     Active Substance: IPILIMUMAB
     Indication: SMALL CELL LUNG CANCER
     Dosage: 144 MILLIGRAM, Q3WK
     Route: 042
     Dates: start: 20191211
  2. OPDIVO [Suspect]
     Active Substance: NIVOLUMAB
     Indication: SMALL CELL LUNG CANCER
     Dosage: 50 MILLIGRAM, Q3WK
     Route: 042
     Dates: start: 20191211

REACTIONS (2)
  - Death [Fatal]
  - Intentional product use issue [Unknown]

NARRATIVE: CASE EVENT DATE: 20200317
